FAERS Safety Report 19367187 (Version 3)
Quarter: 2022Q1

REPORT INFORMATION
  Report Type: Report from Study
  Country: DE (occurrence: DE)
  Receive Date: 20210603
  Receipt Date: 20220307
  Transmission Date: 20220423
  Serious: Yes (Other)
  Sender: FDA-Public Use
  Company Number: DE-002147023-PHHY2019DE117554

PATIENT
  Sex: Female
  Weight: 58.5 kg

DRUGS (6)
  1. LETROZOLE [Suspect]
     Active Substance: LETROZOLE
     Indication: Breast cancer metastatic
     Dosage: 2.5 MILLIGRAM, QD
     Route: 048
     Dates: start: 20190416
  2. KISQALI [Suspect]
     Active Substance: RIBOCICLIB
     Indication: Breast cancer metastatic
     Dosage: 600 MILLIGRAM, QD (600 MG, QD (SCHEME: 21 DAYS INTAKE, 7 DAYS PAUSE))
     Route: 048
     Dates: start: 20190513, end: 20190708
  3. KISQALI [Suspect]
     Active Substance: RIBOCICLIB
     Dosage: 600 MILLIGRAM, QD (600 MG, QD (SCHEME: 21 DAYS INTAKE, 7 DAYS PAUSE))
     Route: 048
     Dates: start: 20190416, end: 20190502
  4. KISQALI [Suspect]
     Active Substance: RIBOCICLIB
     Dosage: 600 MILLIGRAM, QD (600 MG, QD (SCHEME: 21 DAYS INTAKE, 7 DAYS PAUSE))
     Route: 048
     Dates: start: 20190716, end: 20200908
  5. KISQALI [Suspect]
     Active Substance: RIBOCICLIB
     Dosage: 400 MILLIGRAM, QD (400 MG, QD (SCHEME: 21 DAYS INTAKE, 7 DAYS PAUSE))
     Route: 048
     Dates: start: 20200922, end: 20201214
  6. KISQALI [Suspect]
     Active Substance: RIBOCICLIB
     Dosage: 400 MILLIGRAM, QD (400 MG, QD (SCHEME: 21 DAYS INTAKE, 7 DAYS PAUSE))
     Route: 048
     Dates: start: 20201222

REACTIONS (15)
  - Leukopenia [Not Recovered/Not Resolved]
  - Laryngospasm [Recovered/Resolved]
  - Nail toxicity [Not Recovered/Not Resolved]
  - Discomfort [Recovered/Resolved]
  - Visual impairment [Recovered/Resolved]
  - Mucosal dryness [Not Recovered/Not Resolved]
  - Night sweats [Not Recovered/Not Resolved]
  - Dizziness [Recovered/Resolved]
  - Fatigue [Not Recovered/Not Resolved]
  - Asthenia [Recovered/Resolved]
  - Feeling cold [Not Recovered/Not Resolved]
  - Dry eye [Recovered/Resolved]
  - Liver function test abnormal [Not Recovered/Not Resolved]
  - Inflammation [Not Recovered/Not Resolved]
  - Limb discomfort [Recovered/Resolved]

NARRATIVE: CASE EVENT DATE: 20190429
